FAERS Safety Report 21442466 (Version 1)
Quarter: 2022Q4

REPORT INFORMATION
  Report Type: Spontaneous
  Country: US (occurrence: None)
  Receive Date: 20221010
  Receipt Date: 20221010
  Transmission Date: 20230113
  Serious: Yes (Hospitalization)
  Sender: FDA-Public Use
  Company Number: None

PATIENT
  Age: 74 Year
  Sex: Male
  Weight: 55.34 kg

DRUGS (1)
  1. APIXABAN [Suspect]
     Active Substance: APIXABAN
     Indication: Atrial fibrillation
     Dosage: FREQUENCY : TWICE A DAY;?
     Route: 048
     Dates: start: 20171201

REACTIONS (5)
  - Dizziness [None]
  - Confusional state [None]
  - Gastric haemorrhage [None]
  - Haemoglobin decreased [None]
  - Therapy interrupted [None]

NARRATIVE: CASE EVENT DATE: 20220307
